FAERS Safety Report 16923931 (Version 1)
Quarter: 2019Q4

REPORT INFORMATION
  Report Type: Spontaneous
  Country: US (occurrence: US)
  Receive Date: 20191015
  Receipt Date: 20191015
  Transmission Date: 20200122
  Serious: Yes (Death)
  Sender: FDA-Public Use
  Company Number: None

PATIENT
  Age: 63 Year
  Sex: Female

DRUGS (3)
  1. CARBOPLATIN. [Concomitant]
     Active Substance: CARBOPLATIN
  2. AKYNZEO [Suspect]
     Active Substance: NETUPITANT\PALONOSETRON HYDROCHLORIDE
     Dosage: ?          OTHER FREQUENCY:1 VIAL EVERY21DAYS;?
     Route: 042
     Dates: start: 20190430, end: 20191003
  3. ETOPOSIDE. [Concomitant]
     Active Substance: ETOPOSIDE

REACTIONS (1)
  - Death [None]

NARRATIVE: CASE EVENT DATE: 20191003
